FAERS Safety Report 22842783 (Version 2)
Quarter: 2024Q2

REPORT INFORMATION
  Report Type: Spontaneous
  Country: US (occurrence: US)
  Receive Date: 20230821
  Receipt Date: 20240401
  Transmission Date: 20240716
  Serious: No
  Sender: FDA-Public Use
  Company Number: US-GSK-US2023AMR109677

PATIENT
  Sex: Female

DRUGS (6)
  1. BENLYSTA [Suspect]
     Active Substance: BELIMUMAB
     Indication: Migraine without aura
     Dosage: 200 MG/ML, WE (FOR 28 DAYS)
     Route: 058
  2. BENLYSTA [Suspect]
     Active Substance: BELIMUMAB
     Indication: Rheumatoid arthritis
  3. BENLYSTA [Suspect]
     Active Substance: BELIMUMAB
     Indication: Systemic lupus erythematosus
  4. BENLYSTA [Suspect]
     Active Substance: BELIMUMAB
     Indication: Fibromyalgia
  5. BENLYSTA [Suspect]
     Active Substance: BELIMUMAB
     Indication: Migraine without aura
     Dosage: 200 MG/ML, WE (FOR 28 DAYS)
     Route: 058
  6. BENLYSTA [Suspect]
     Active Substance: BELIMUMAB

REACTIONS (3)
  - Product dose omission issue [Unknown]
  - Product use in unapproved indication [Unknown]
  - Product outer packaging issue [Unknown]
